FAERS Safety Report 9245836 (Version 2)
Quarter: 2013Q3

REPORT INFORMATION
  Report Type: Spontaneous
  Country: US (occurrence: US)
  Receive Date: 20130422
  Receipt Date: 20130724
  Transmission Date: 20140515
  Serious: Yes (Hospitalization)
  Sender: FDA-Public Use
  Company Number: US-BRISTOL-MYERS SQUIBB COMPANY-17459538

PATIENT
  Age: 77 Year
  Sex: Male

DRUGS (5)
  1. ELIQUIS [Suspect]
     Indication: ATRIAL FIBRILLATION
     Route: 048
     Dates: start: 20130222, end: 20130307
  2. DIGOXIN [Concomitant]
  3. METOPROLOL [Concomitant]
  4. ASPIRIN [Concomitant]
  5. METFORMIN [Concomitant]

REACTIONS (2)
  - Tumour haemorrhage [Recovering/Resolving]
  - Faeces discoloured [Recovering/Resolving]
